FAERS Safety Report 7961301-3 (Version None)
Quarter: 2011Q4

REPORT INFORMATION
  Report Type: 
  Country: None (occurrence: None)
  Receive Date: 20111207
  Receipt Date: 20111122
  Transmission Date: 20120403
  Serious: Yes (Other)
  Sender: FDA-Public Use
  Company Number: PHHY2011US33858

PATIENT
  Sex: Male
  Weight: 73.923 kg

DRUGS (20)
  1. IBUPROFEN [Concomitant]
     Dosage: 800 MG, UNK
  2. GILENYA [Suspect]
     Indication: RELAPSING-REMITTING MULTIPLE SCLEROSIS
     Dosage: 0.5 MG, QD
     Route: 048
     Dates: start: 20110322
  3. NORVASC [Concomitant]
     Dosage: 10 MG, QD
  4. PRISTIQ [Concomitant]
     Dosage: 50 MG, QD
  5. SYNVASTANE [Concomitant]
     Dosage: 30 MG, UNK
  6. MORPHINE [Concomitant]
     Dosage: 30 MG, UNK
  7. LYRICA [Concomitant]
     Dosage: 300 MG, BID
  8. TORADOL [Concomitant]
     Dosage: 10 MG, PRN
  9. ZOFRAN [Concomitant]
     Dosage: 8 MG, PRN
  10. SHARK CARTILAGE [Concomitant]
     Dosage: UNK UKN, UNK
  11. GILENYA [Suspect]
     Dosage: 0.5 MG, DAILY
     Route: 048
     Dates: start: 20110617
  12. ADDERALL 5 [Concomitant]
     Dosage: 10 MG, BID
  13. NEXIUM [Concomitant]
     Dosage: 40 MG, BID
  14. TESTORAL [Concomitant]
     Dosage: 1 MG, DAILY
  15. MORPHINE [Concomitant]
     Dosage: 100 MG, TID
  16. XANAX [Concomitant]
     Dosage: 1 MG, TID
  17. VITAMIN B-12 [Concomitant]
     Dosage: 1 DF, QMO
  18. SOMA [Concomitant]
     Dosage: 350 OT, QID
  19. FLU [Concomitant]
     Dosage: UNK UKN, UNK
     Dates: start: 20111016
  20. VITAMIN TAB [Concomitant]
     Dosage: UNK UKN, UNK

REACTIONS (5)
  - FATIGUE [None]
  - PAIN [None]
  - COMPLEX PARTIAL SEIZURES [None]
  - NECK PAIN [None]
  - BACK PAIN [None]
